FAERS Safety Report 12644394 (Version 5)
Quarter: 2018Q4

REPORT INFORMATION
  Report Type: Spontaneous
  Country: US (occurrence: US)
  Receive Date: 20160811
  Receipt Date: 20181127
  Transmission Date: 20190204
  Serious: Yes (Hospitalization, Other)
  Sender: FDA-Public Use
  Company Number: US-DSJP-DSU-2016-118012

PATIENT

DRUGS (2)
  1. BENICAR [Suspect]
     Active Substance: OLMESARTAN MEDOXOMIL
     Indication: BLOOD PRESSURE INCREASED
     Dosage: 20 MG
     Route: 048
  2. BENICAR HCT [Suspect]
     Active Substance: HYDROCHLOROTHIAZIDE\OLMESARTAN MEDOXOMIL
     Indication: HYPERTENSION
     Dosage: 20/12.5MG, UNK
     Dates: end: 2014

REACTIONS (5)
  - Sprue-like enteropathy [Unknown]
  - Gastrointestinal haemorrhage [Unknown]
  - Acute kidney injury [Unknown]
  - Diverticulum intestinal [Unknown]
  - Dizziness [Unknown]

NARRATIVE: CASE EVENT DATE: 20090101
